FAERS Safety Report 17915904 (Version 1)
Quarter: 2020Q2

REPORT INFORMATION
  Report Type: Spontaneous
  Country: US (occurrence: US)
  Receive Date: 20200618
  Receipt Date: 20200618
  Transmission Date: 20200714
  Serious: Yes (Other)
  Sender: FDA-Public Use
  Company Number: None

PATIENT
  Age: 24 Year
  Sex: Female
  Weight: 83.7 kg

DRUGS (1)
  1. MULTIHANCE [Suspect]
     Active Substance: GADOBENATE DIMEGLUMINE
     Dosage: ?          OTHER FREQUENCY:BOLUS;?
     Route: 040

REACTIONS (1)
  - Urticaria [None]

NARRATIVE: CASE EVENT DATE: 20200617
